FAERS Safety Report 6245492-0 (Version None)
Quarter: 2009Q2

REPORT INFORMATION
  Report Type: 
  Country: None (occurrence: None)
  Receive Date: 20090619
  Receipt Date: 20090310
  Transmission Date: 20091009
  Serious: No
  Sender: FDA-Public Use
  Company Number: ALL1-2009-00641

PATIENT
  Age: 39 Year
  Sex: Female
  Weight: 61.2 kg

DRUGS (8)
  1. VYVANSE [Suspect]
     Indication: ATTENTION DEFICIT/HYPERACTIVITY DISORDER
     Dosage: 50 MG, 1X/DAY:QD, ORAL
     Route: 048
     Dates: start: 20080801, end: 20090201
  2. VYVANSE [Suspect]
     Indication: BIPOLAR DISORDER
     Dosage: 50 MG, 1X/DAY:QD, ORAL
     Route: 048
     Dates: start: 20080801, end: 20090201
  3. SYNTHROID [Concomitant]
  4. TOPAMAX [Concomitant]
  5. LORAZEPAM [Concomitant]
  6. ALLEGRA /01314201/ (FEXOFENADINE) [Concomitant]
  7. CELEXA /00582602/ (CITALOPRAM HYDROBROMIDE) [Concomitant]
  8. FLEXERIL /00428402/ (CYCLOBENZAPRINE HYDROCHLORIDE) [Concomitant]

REACTIONS (6)
  - ASTHMA [None]
  - BRONCHITIS [None]
  - CHEST X-RAY ABNORMAL [None]
  - OFF LABEL USE [None]
  - RAYNAUD'S PHENOMENON [None]
  - WEIGHT DECREASED [None]
